FAERS Safety Report 7916418-6 (Version None)
Quarter: 2011Q4

REPORT INFORMATION
  Report Type: 
  Country: None (occurrence: None)
  Receive Date: 20111116
  Receipt Date: 20081003
  Transmission Date: 20120403
  Serious: No
  Sender: FDA-Public Use
  Company Number: 2008BI026182

PATIENT
  Age: 46 Year
  Sex: Female

DRUGS (1)
  1. TYSABRI [Suspect]
     Indication: MULTIPLE SCLEROSIS
     Route: 042
     Dates: start: 20080528

REACTIONS (5)
  - SPINAL DEFORMITY [None]
  - MEMORY IMPAIRMENT [None]
  - SENSATION OF HEAVINESS [None]
  - FALL [None]
  - MUSCULAR WEAKNESS [None]
